FAERS Safety Report 13269487 (Version 3)
Quarter: 2017Q3

REPORT INFORMATION
  Report Type: Spontaneous
  Country: US (occurrence: US)
  Receive Date: 20170224
  Receipt Date: 20170724
  Transmission Date: 20171127
  Serious: Yes (Other)
  Sender: FDA-Public Use
  Company Number: US-UCBSA-2017007291

PATIENT
  Age: 76 Year
  Sex: Male
  Weight: 64 kg

DRUGS (3)
  1. DECADRON [Suspect]
     Active Substance: DEXAMETHASONE
     Indication: BRAIN OEDEMA
     Dosage: 4 MG, ONCE DAILY (QD)
     Dates: start: 201501
  2. VIMPAT [Suspect]
     Active Substance: LACOSAMIDE
     Indication: GENERALISED TONIC-CLONIC SEIZURE
     Dosage: 100 MG, 2X/DAY (BID)
     Route: 048
     Dates: start: 201608
  3. VIMPAT [Suspect]
     Active Substance: LACOSAMIDE
     Indication: OFF LABEL USE

REACTIONS (6)
  - Speech disorder [Not Recovered/Not Resolved]
  - Seizure [Recovered/Resolved]
  - Rash macular [Recovered/Resolved]
  - Tremor [Not Recovered/Not Resolved]
  - Off label use [Unknown]
  - Muscular weakness [Not Recovered/Not Resolved]

NARRATIVE: CASE EVENT DATE: 2016
